FAERS Safety Report 15316585 (Version 2)
Quarter: 2018Q3

REPORT INFORMATION
  Report Type: Spontaneous
  Country: NL (occurrence: NL)
  Receive Date: 20180824
  Receipt Date: 20180904
  Transmission Date: 20181010
  Serious: Yes (Other)
  Sender: FDA-Public Use
  Company Number: NL-JNJFOC-20180820843

PATIENT
  Age: 31 Year
  Sex: Male

DRUGS (2)
  1. XEPLION [Suspect]
     Active Substance: PALIPERIDONE PALMITATE
     Indication: PRODUCT USED FOR UNKNOWN INDICATION
     Route: 030
     Dates: start: 2011
  2. ZYPREXA [Suspect]
     Active Substance: OLANZAPINE
     Indication: PRODUCT USED FOR UNKNOWN INDICATION
     Route: 065

REACTIONS (18)
  - Apparent death [Unknown]
  - Muscle mass [Not Recovered/Not Resolved]
  - Blood testosterone abnormal [Unknown]
  - Bruxism [Unknown]
  - Eye colour change [Unknown]
  - Psychotic disorder [Unknown]
  - Visual pathway disorder [Not Recovered/Not Resolved]
  - Depersonalisation/derealisation disorder [Unknown]
  - Dyskinesia [Not Recovered/Not Resolved]
  - Illusion [Unknown]
  - Muscle spasticity [Unknown]
  - Photopsia [Unknown]
  - Patient dissatisfaction with treatment [Unknown]
  - Blindness [Not Recovered/Not Resolved]
  - Feeling abnormal [Not Recovered/Not Resolved]
  - Adverse drug reaction [Unknown]
  - Overweight [Not Recovered/Not Resolved]
  - Weight increased [Unknown]
